FAERS Safety Report 7770308-0 (Version None)
Quarter: 2011Q3

REPORT INFORMATION
  Report Type: 
  Country: None (occurrence: None)
  Receive Date: 20110922
  Receipt Date: 20110526
  Transmission Date: 20111222
  Serious: No
  Sender: FDA-Public Use
  Company Number: US-ASTRAZENECA-2011SE32801

PATIENT
  Age: 47 Year
  Sex: Female
  Weight: 77.1 kg

DRUGS (2)
  1. SEROQUEL XR [Suspect]
     Indication: BIPOLAR DISORDER
     Route: 048
  2. LITHIUM CARBONATE [Concomitant]

REACTIONS (3)
  - DRUG DOSE OMISSION [None]
  - ABNORMAL BEHAVIOUR [None]
  - MENTAL DISORDER [None]
